FAERS Safety Report 25020620 (Version 1)
Quarter: 2025Q1

REPORT INFORMATION
  Report Type: Spontaneous
  Country: US (occurrence: US)
  Receive Date: 20250227
  Receipt Date: 20250227
  Transmission Date: 20250409
  Serious: No
  Sender: PRIMUS PHARMACEUTICALS
  Company Number: US-PRIMUS-2024-US-059631

PATIENT
  Age: 66 Year
  Sex: Female

DRUGS (3)
  1. SERNIVO [Suspect]
     Active Substance: BETAMETHASONE DIPROPIONATE
     Indication: Dermatitis
     Route: 061
     Dates: start: 20241009, end: 20241104
  2. AMBIEN [Concomitant]
     Active Substance: ZOLPIDEM TARTRATE
  3. SOTYKTU [Concomitant]
     Active Substance: DEUCRAVACITINIB

REACTIONS (2)
  - Drug ineffective [Recovered/Resolved]
  - Product administered at inappropriate site [Recovered/Resolved]
